FAERS Safety Report 4299958-3 (Version None)
Quarter: 2004Q1

REPORT INFORMATION
  Report Type: 
  Country: None (occurrence: None)
  Receive Date: 20040218
  Receipt Date: 20040209
  Transmission Date: 20041129
  Serious: Yes (Death)
  Sender: FDA-Public Use
  Company Number: JP-JNJFOC-20040201807

PATIENT
  Age: 40 Year
  Sex: Male

DRUGS (1)
  1. LEVOFLOXACIN (LEVOFLOXACIN) TABLETS [Suspect]
     Indication: SINUSITIS
     Dosage: 600 MG, 1 IN 1 DAY, ORAL
     Route: 048
     Dates: start: 20040120, end: 20040121

REACTIONS (2)
  - NAUSEA [None]
  - SUDDEN DEATH [None]
